FAERS Safety Report 17936980 (Version 7)
Quarter: 2021Q4

REPORT INFORMATION
  Report Type: Spontaneous
  Country: US (occurrence: US)
  Receive Date: 20200624
  Receipt Date: 20211213
  Transmission Date: 20220303
  Serious: Yes (Other)
  Sender: FDA-Public Use
  Company Number: US-GILEAD-2020-0475000

PATIENT
  Age: 52 Year
  Sex: Male
  Weight: 93.424 kg

DRUGS (107)
  1. VIREAD [Suspect]
     Active Substance: TENOFOVIR DISOPROXIL FUMARATE
     Indication: HIV infection
     Dosage: UNK
     Route: 048
     Dates: start: 2005, end: 200903
  2. VIREAD [Suspect]
     Active Substance: TENOFOVIR DISOPROXIL FUMARATE
     Dosage: UNK
     Route: 048
     Dates: start: 20030315, end: 200406
  3. VIREAD [Suspect]
     Active Substance: TENOFOVIR DISOPROXIL FUMARATE
     Dosage: UNK
     Route: 048
     Dates: start: 200406, end: 20050303
  4. VIREAD [Suspect]
     Active Substance: TENOFOVIR DISOPROXIL FUMARATE
     Dosage: UNK
     Route: 048
     Dates: start: 20050503, end: 20191010
  5. VIREAD [Suspect]
     Active Substance: TENOFOVIR DISOPROXIL FUMARATE
     Dosage: UNK
     Route: 065
     Dates: start: 20031015, end: 200406
  6. VIREAD [Suspect]
     Active Substance: TENOFOVIR DISOPROXIL FUMARATE
     Dosage: UNK
     Route: 065
     Dates: start: 200406, end: 20050302
  7. VIREAD [Suspect]
     Active Substance: TENOFOVIR DISOPROXIL FUMARATE
     Dosage: UNK
     Route: 065
     Dates: start: 20050303, end: 20060418
  8. VIREAD [Suspect]
     Active Substance: TENOFOVIR DISOPROXIL FUMARATE
     Dosage: UNK
     Route: 065
     Dates: start: 20160627, end: 20191010
  9. VIREAD [Suspect]
     Active Substance: TENOFOVIR DISOPROXIL FUMARATE
     Dosage: UNK
     Route: 065
     Dates: start: 200605, end: 20090101
  10. TRUVADA [Suspect]
     Active Substance: EMTRICITABINE\TENOFOVIR DISOPROXIL FUMARATE
     Indication: HIV infection
     Dosage: UNK
     Route: 048
     Dates: start: 20060425, end: 200605
  11. TRUVADA [Suspect]
     Active Substance: EMTRICITABINE\TENOFOVIR DISOPROXIL FUMARATE
     Dosage: UNK
     Route: 065
     Dates: start: 20060418, end: 200605
  12. BIKTARVY [Concomitant]
     Active Substance: BICTEGRAVIR SODIUM\EMTRICITABINE\TENOFOVIR ALAFENAMIDE FUMARATE
     Dosage: UNK
     Route: 065
     Dates: start: 20201105
  13. DESCOVY [Concomitant]
     Active Substance: EMTRICITABINE\TENOFOVIR ALAFENAMIDE FUMARATE
  14. SEVELAMER [Concomitant]
     Active Substance: SEVELAMER
     Dosage: UNK
     Route: 065
     Dates: start: 20121213, end: 20201026
  15. ACETAMINOPHEN [Concomitant]
     Active Substance: ACETAMINOPHEN
     Dosage: UNK
     Route: 065
     Dates: start: 20160127
  16. TRAMADOL [Concomitant]
     Active Substance: TRAMADOL
     Dosage: UNK
     Route: 065
     Dates: start: 20161026, end: 20201024
  17. DOCUSATE SODIUM [Concomitant]
     Active Substance: DOCUSATE SODIUM
     Dosage: UNK
     Route: 065
     Dates: start: 20151130, end: 20201024
  18. LIPITOR [Concomitant]
     Active Substance: ATORVASTATIN CALCIUM
     Indication: Hyperlipidaemia
     Dosage: UNK
     Route: 065
     Dates: start: 20201024
  19. RENO [SODIUM BICARBONATE] [Concomitant]
     Dosage: UNK
     Route: 065
     Dates: start: 20160229, end: 20180823
  20. CALCITRIOL [Concomitant]
     Active Substance: CALCITRIOL
     Dosage: UNK
     Route: 065
     Dates: start: 20121214, end: 202105
  21. CARVEDILOL [Concomitant]
     Active Substance: CARVEDILOL
     Indication: Hypertension
     Dosage: UNK
     Route: 065
     Dates: start: 20131029
  22. CALCIUM ACETATE [Concomitant]
     Active Substance: CALCIUM ACETATE
     Dosage: UNK
     Route: 065
     Dates: start: 20170118, end: 202011
  23. STENDRA [Concomitant]
     Active Substance: AVANAFIL
     Indication: Erectile dysfunction
     Dosage: UNK
     Route: 065
     Dates: start: 20130326
  24. AZITHROMYCIN [Concomitant]
     Active Substance: AZITHROMYCIN
     Indication: Bronchitis
     Dosage: UNK
     Route: 065
     Dates: start: 20061220, end: 20061220
  25. AZITHROMYCIN [Concomitant]
     Active Substance: AZITHROMYCIN
     Dosage: UNK
     Route: 065
     Dates: start: 201310, end: 201610
  26. TYLENOL [Concomitant]
     Active Substance: ACETAMINOPHEN
     Dosage: UNK
     Route: 065
     Dates: end: 202105
  27. AMOXICILLIN [Concomitant]
     Active Substance: AMOXICILLIN
     Dosage: UNK
     Route: 065
     Dates: start: 20110509, end: 202010
  28. ASPIRIN [Concomitant]
     Active Substance: ASPIRIN
     Dosage: UNK
  29. BACTRIM [Concomitant]
     Active Substance: SULFAMETHOXAZOLE\TRIMETHOPRIM
     Dosage: UNK
     Route: 065
     Dates: start: 20121221
  30. CEFTAZIDIME [Concomitant]
     Active Substance: CEFTAZIDIME
     Dosage: UNK
     Route: 065
     Dates: start: 20181001, end: 201811
  31. MORNIFLUMATE [Concomitant]
     Active Substance: MORNIFLUMATE
     Dosage: UNK
     Route: 065
     Dates: start: 20201024
  32. HEPARIN [Concomitant]
     Active Substance: HEPARIN SODIUM
     Dosage: UNK
     Route: 065
     Dates: start: 20121212, end: 202010
  33. LASIX [Concomitant]
     Active Substance: FUROSEMIDE
     Dosage: UNK
     Route: 065
     Dates: start: 20201023, end: 20201108
  34. PANTOPRAZOLE [Concomitant]
     Active Substance: PANTOPRAZOLE
     Dosage: UNK
     Route: 065
     Dates: start: 20201024, end: 202012
  35. PREDNISONE [Concomitant]
     Active Substance: PREDNISONE
     Dosage: UNK
     Route: 065
     Dates: start: 20201024
  36. TACROLIMUS [Concomitant]
     Active Substance: TACROLIMUS
     Dosage: UNK
     Route: 065
     Dates: start: 20200124
  37. VANCOMYCIN [Concomitant]
     Active Substance: VANCOMYCIN
     Dosage: UNK
     Route: 065
     Dates: start: 20181001, end: 201810
  38. COMBIVIR [Concomitant]
     Active Substance: LAMIVUDINE\ZIDOVUDINE
     Dosage: UNK
     Route: 065
     Dates: start: 200503, end: 200801
  39. EPIVIR [Concomitant]
     Active Substance: LAMIVUDINE
     Dosage: UNK
     Route: 065
     Dates: start: 20060401
  40. NORVIR [Concomitant]
     Active Substance: RITONAVIR
     Dosage: UNK
     Route: 065
     Dates: start: 20031015, end: 20160825
  41. RETROVIR [Concomitant]
     Active Substance: ZIDOVUDINE
     Dosage: UNK
     Route: 065
     Dates: start: 20031015, end: 20130927
  42. REYATAZ [Concomitant]
     Active Substance: ATAZANAVIR SULFATE
     Dosage: UNK
     Route: 065
     Dates: start: 20031015, end: 20160205
  43. SUSTIVA [Concomitant]
     Active Substance: EFAVIRENZ
     Dosage: UNK
     Route: 065
     Dates: start: 20060418, end: 200605
  44. TIVICAY [Concomitant]
     Active Substance: DOLUTEGRAVIR SODIUM
     Dosage: UNK
     Route: 065
     Dates: start: 20140610
  45. VIDEX [Concomitant]
     Active Substance: DIDANOSINE
     Dosage: UNK
     Route: 065
     Dates: start: 20130311, end: 20131010
  46. LISINOPRIL [Concomitant]
     Active Substance: LISINOPRIL
     Dosage: UNK
     Route: 065
     Dates: start: 20130314, end: 201401
  47. AMLODIPINE BESYLATE [Concomitant]
     Active Substance: AMLODIPINE BESYLATE
     Dosage: UNK
     Route: 065
     Dates: start: 20160226, end: 20160816
  48. GEMFIBROZIL [Concomitant]
     Active Substance: GEMFIBROZIL
     Dosage: UNK
     Route: 065
     Dates: start: 20160418, end: 20160815
  49. FLUDROCORTISONE [Concomitant]
     Active Substance: FLUDROCORTISONE
     Dosage: UNK
     Route: 065
     Dates: start: 202010, end: 202012
  50. PROCTOZONE HC [Concomitant]
     Active Substance: HYDROCORTISONE
     Dosage: UNK
     Route: 065
     Dates: start: 20121212, end: 20130318
  51. IBUPROFEN [Concomitant]
     Active Substance: IBUPROFEN
     Dosage: UNK
     Route: 065
     Dates: end: 201406
  52. CLONIDINE HYDROCHLORIDE [Concomitant]
     Active Substance: CLONIDINE HYDROCHLORIDE
     Dosage: UNK
     Route: 065
     Dates: start: 20170111
  53. NIFEDIPINE [Concomitant]
     Active Substance: NIFEDIPINE
     Dosage: UNK
     Route: 065
     Dates: start: 20160127, end: 202104
  54. HYDRALAZINE [Concomitant]
     Active Substance: HYDRALAZINE HYDROCHLORIDE
     Dosage: UNK
     Route: 065
     Dates: start: 20170109, end: 20201028
  55. FERROUS SULFATE [Concomitant]
     Active Substance: FERROUS SULFATE
     Dosage: UNK
     Route: 065
     Dates: start: 20131022
  56. MYCOPHENOLATE MOFETIL [Concomitant]
     Active Substance: MYCOPHENOLATE MOFETIL
     Dosage: UNK
     Route: 065
     Dates: start: 20201024
  57. VALGANCICLOVIR [Concomitant]
     Active Substance: VALGANCICLOVIR
     Dosage: UNK
     Route: 065
     Dates: start: 20201024, end: 202012
  58. MINOXIDIL [Concomitant]
     Active Substance: MINOXIDIL
     Dosage: UNK
     Route: 065
     Dates: start: 20180105, end: 202010
  59. VEMLIDY [Concomitant]
     Active Substance: TENOFOVIR ALAFENAMIDE FUMARATE
     Dosage: UNK
     Route: 065
     Dates: start: 201910, end: 202010
  60. FOLIC ACID [Concomitant]
     Active Substance: FOLIC ACID
     Dosage: UNK
     Route: 065
     Dates: start: 201310, end: 202010
  61. SENOKOT [Concomitant]
     Active Substance: SENNOSIDES
     Dosage: UNK
     Route: 065
     Dates: start: 201610, end: 202010
  62. OXYCODONE [Concomitant]
     Active Substance: OXYCODONE
     Dosage: UNK
     Route: 065
     Dates: start: 201610, end: 201612
  63. HERBALS\PLANTAGO OVATA SEED\PLANTAGO SEED [Concomitant]
     Active Substance: HERBALS\PLANTAGO OVATA SEED\PLANTAGO SEED
     Dosage: UNK
     Route: 065
     Dates: start: 201610, end: 201611
  64. CIALIS [Concomitant]
     Active Substance: TADALAFIL
     Dosage: UNK
     Route: 065
     Dates: start: 201107, end: 201610
  65. CIPROFLOXACIN [Concomitant]
     Active Substance: CIPROFLOXACIN
     Dosage: UNK
     Route: 065
     Dates: start: 201203, end: 201610
  66. EPOGEN [Concomitant]
     Active Substance: ERYTHROPOIETIN
  67. HECTOROL [Concomitant]
     Active Substance: DOXERCALCIFEROL
  68. ADVIL [Concomitant]
     Active Substance: IBUPROFEN
  69. IRON [Concomitant]
     Active Substance: IRON
  70. NEPHRO VITE RX [Concomitant]
     Active Substance: ASCORBIC ACID\BIOTIN\CALCIUM PANTOTHENATE\CYANOCOBALAMIN\FOLIC ACID\NIACINAMIDE\PYRIDOXINE HYDROCHLO
  71. VITAMIN B [Concomitant]
     Active Substance: VITAMIN B
  72. SENSIPAR [Concomitant]
     Active Substance: CINACALCET HYDROCHLORIDE
  73. VENOFER [Concomitant]
     Active Substance: IRON SUCROSE
  74. TESTOSTERONE [Concomitant]
     Active Substance: TESTOSTERONE
  75. AVANAFIL [Concomitant]
     Active Substance: AVANAFIL
  76. COLACE [Concomitant]
     Active Substance: DOCUSATE SODIUM
  77. CLOMIPHENE CITRATE [Concomitant]
     Active Substance: CLOMIPHENE CITRATE
  78. INSULIN NOS [Concomitant]
     Active Substance: INSULIN NOS
  79. ATORVASTATIN [Concomitant]
     Active Substance: ATORVASTATIN
  80. CORTISONE [Concomitant]
     Active Substance: CORTISONE
  81. METHYLPREDNISOLONE [Concomitant]
     Active Substance: METHYLPREDNISOLONE
  82. COREG [Concomitant]
     Active Substance: CARVEDILOL
  83. LEXAPRO [Concomitant]
     Active Substance: ESCITALOPRAM OXALATE
  84. HYDROCORTISONE [Concomitant]
     Active Substance: HYDROCORTISONE
  85. PROCTOZONE HC [Concomitant]
     Active Substance: HYDROCORTISONE
  86. ANDROGEL [Concomitant]
     Active Substance: TESTOSTERONE
  87. CINACALCET HYDROCHLORIDE [Concomitant]
     Active Substance: CINACALCET HYDROCHLORIDE
  88. MINERAL OIL [Concomitant]
     Active Substance: MINERAL OIL
  89. ONDANSETRON [Concomitant]
     Active Substance: ONDANSETRON
  90. FENOFIBRATE [Concomitant]
     Active Substance: FENOFIBRATE
  91. FLUCONAZOLE [Concomitant]
     Active Substance: FLUCONAZOLE
  92. DIFLUCAN [Concomitant]
     Active Substance: FLUCONAZOLE
  93. INFLUENZA VIRUS VACCINE [Concomitant]
     Active Substance: INFLUENZA VIRUS VACCINE
  94. MIRALAX [Concomitant]
     Active Substance: POLYETHYLENE GLYCOL 3350
  95. TETANUS TOXOID ADSORBED (VACCINE) [Concomitant]
     Active Substance: CLOSTRIDIUM TETANI TOXOID ANTIGEN (FORMALDEHYDE INACTIVATED)
  96. HEPATITIS A VIRUS STRAIN HM175 ANTIGEN (FORMALDEHYDE INACTIVATED) [Concomitant]
     Active Substance: HEPATITIS A VIRUS STRAIN HM175 ANTIGEN (FORMALDEHYDE INACTIVATED)
  97. HEPATITIS B VIRUS VACCINE [Concomitant]
     Active Substance: HEPATITIS B VIRUS VACCINE
  98. PNEUMOCOCCAL VACCINE POLYVALENT NOS [Concomitant]
     Active Substance: PNEUMOCOCCAL VACCINE POLYVALENT
  99. CEPHALEXIN [Concomitant]
     Active Substance: CEPHALEXIN
  100. NYSTATIN [Concomitant]
     Active Substance: NYSTATIN
  101. FENTANYL [Concomitant]
     Active Substance: FENTANYL
  102. BUPIVACAINE [Concomitant]
     Active Substance: BUPIVACAINE
  103. XYLOCAINE [Concomitant]
     Active Substance: LIDOCAINE HYDROCHLORIDE
  104. HYDROMORPHONE [Concomitant]
     Active Substance: HYDROMORPHONE
  105. CHLORHEXIDINE GLUCONATE [Concomitant]
     Active Substance: CHLORHEXIDINE GLUCONATE
  106. SODIUM CHLORIDE [Concomitant]
     Active Substance: SODIUM CHLORIDE
  107. ULTRAM [Concomitant]
     Active Substance: TRAMADOL HYDROCHLORIDE

REACTIONS (9)
  - Chronic kidney disease [Unknown]
  - End stage renal disease [Not Recovered/Not Resolved]
  - Chronic kidney disease-mineral and bone disorder [Recovered/Resolved]
  - Renal failure [Unknown]
  - Acute kidney injury [Unknown]
  - Nephropathy [Not Recovered/Not Resolved]
  - Emotional distress [Unknown]
  - Somnolence [Unknown]
  - Pain [Unknown]

NARRATIVE: CASE EVENT DATE: 20121212
